FAERS Safety Report 7789068-2 (Version None)
Quarter: 2011Q3

REPORT INFORMATION
  Report Type: 
  Country: None (occurrence: None)
  Receive Date: 20110930
  Receipt Date: 20110921
  Transmission Date: 20111222
  Serious: Yes (Other)
  Sender: FDA-Public Use
  Company Number: PL-JNJFOC-20110909879

PATIENT
  Age: 37 Year
  Sex: Female

DRUGS (4)
  1. CLADRIBINE [Suspect]
     Indication: HAIRY CELL LEUKAEMIA
     Route: 058
  2. PENTOSTATIN [Suspect]
     Indication: HAIRY CELL LEUKAEMIA
     Route: 065
  3. INTERFERON ALFA [Suspect]
     Indication: HAIRY CELL LEUKAEMIA
     Dosage: MAINTENANCE DOSE
     Route: 058
  4. INTERFERON ALFA [Suspect]
     Dosage: INDUCTION DOSE- FOR 24 WEEKS
     Route: 058

REACTIONS (2)
  - OVARIAN FAILURE [None]
  - ADVERSE DRUG REACTION [None]
